FAERS Safety Report 6041790-4 (Version None)
Quarter: 2009Q1

REPORT INFORMATION
  Report Type: 
  Country: None (occurrence: None)
  Receive Date: 20090116
  Receipt Date: 20090112
  Transmission Date: 20090719
  Serious: Yes (Hospitalization)
  Sender: FDA-Public Use
  Company Number: DE-AVENTIS-200910106DE

PATIENT
  Age: 64 Year
  Sex: Male

DRUGS (3)
  1. LANTUS [Suspect]
     Route: 058
  2. ACTRAPID HUMAN [Suspect]
     Dosage: DOSE: 8-6-10-10
     Route: 058
  3. TAMSULOSIN HCL [Suspect]
     Route: 048
     Dates: start: 20080101

REACTIONS (1)
  - SYNCOPE [None]
